FAERS Safety Report 4361883-7 (Version None)
Quarter: 2004Q2

REPORT INFORMATION
  Report Type: 
  Country: None (occurrence: None)
  Receive Date: 20040521
  Receipt Date: 20040329
  Transmission Date: 20050107
  Serious: No
  Sender: FDA-Public Use
  Company Number: US-GLAXOSMITHKLINE-A0504915A

PATIENT
  Age: 44 Year
  Sex: Female

DRUGS (4)
  1. WELLBUTRIN XL [Suspect]
     Indication: POST-TRAUMATIC STRESS DISORDER
     Dosage: 150MG PER DAY
     Route: 048
     Dates: start: 20040309, end: 20040325
  2. DARVOCET [Concomitant]
  3. PLAQUENIL [Concomitant]
  4. AMBIEN [Concomitant]

REACTIONS (2)
  - AGITATION [None]
  - ANOREXIA [None]
